FAERS Safety Report 8515834 (Version 4)
Quarter: 2014Q3

REPORT INFORMATION
  Report Type: Report from Study
  Country: US (occurrence: US)
  Receive Date: 20120417
  Receipt Date: 20140812
  Transmission Date: 20150326
  Serious: Yes (Death, Other)
  Sender: FDA-Public Use
  Company Number: US-CELGENEUS-163-21880-12041050

PATIENT

DRUGS (3)
  1. REVLIMID [Suspect]
     Active Substance: LENALIDOMIDE
     Indication: 5Q MINUS SYNDROME
  2. REVLIMID [Suspect]
     Active Substance: LENALIDOMIDE
     Indication: MYELODYSPLASTIC SYNDROME
     Dosage: 10 MILLIGRAM
     Route: 048
  3. VIDAZA [Suspect]
     Active Substance: AZACITIDINE
     Indication: MYELODYSPLASTIC SYNDROME
     Dosage: 75 MILLIGRAM/SQ. METER
     Route: 058

REACTIONS (32)
  - Rash [Unknown]
  - Constipation [Unknown]
  - Diarrhoea [Unknown]
  - Dyspepsia [Unknown]
  - Decreased appetite [Unknown]
  - Vomiting [Unknown]
  - Death [Fatal]
  - Pneumonitis [Unknown]
  - Pneumonia [Unknown]
  - Febrile neutropenia [Unknown]
  - Pruritus [Unknown]
  - Headache [Unknown]
  - Dysgeusia [Unknown]
  - Infection [Unknown]
  - Cerebral haemorrhage [Unknown]
  - Neutropenia [Unknown]
  - Gastrointestinal disorder [Unknown]
  - Chills [Unknown]
  - Dizziness [Unknown]
  - Fatigue [Unknown]
  - Nausea [Unknown]
  - Pyrexia [Unknown]
  - Skin disorder [Unknown]
  - Insomnia [Unknown]
  - Injection site reaction [Unknown]
  - Acute myeloid leukaemia [Unknown]
  - Basal cell carcinoma [Unknown]
  - Squamous cell carcinoma of skin [Unknown]
  - Adverse event [Unknown]
  - Dyspnoea [Unknown]
  - Hypotension [Unknown]
  - Oedema peripheral [Unknown]
